FAERS Safety Report 7342888-0 (Version None)
Quarter: 2011Q1

REPORT INFORMATION
  Report Type: 
  Country: None (occurrence: None)
  Receive Date: 20110310
  Receipt Date: 20110304
  Transmission Date: 20110831
  Serious: Yes (Disabling, Other)
  Sender: FDA-Public Use
  Company Number: BR-ABBOTT-11P-020-0709378-00

PATIENT
  Sex: Female
  Weight: 77 kg

DRUGS (5)
  1. FOLIC ACID [Concomitant]
     Indication: PRODUCT USED FOR UNKNOWN INDICATION
     Dosage: 2 PER WEEK
     Route: 048
  2. METHOTREXATE [Concomitant]
     Indication: RHEUMATOID ARTHRITIS
     Dosage: 6 PER WEEK
     Route: 048
  3. KETOPROFEN [Concomitant]
     Indication: PAIN
     Route: 048
  4. HUMIRA [Suspect]
     Indication: RHEUMATOID ARTHRITIS
     Route: 058
     Dates: start: 20100101
  5. LOSARTAN POTASSIUM [Concomitant]
     Indication: HYPERTENSION
     Route: 048

REACTIONS (10)
  - GAIT DISTURBANCE [None]
  - FOOT OPERATION [None]
  - ILL-DEFINED DISORDER [None]
  - GENERALISED OEDEMA [None]
  - OEDEMA PERIPHERAL [None]
  - HYPERHIDROSIS [None]
  - WEIGHT INCREASED [None]
  - DIZZINESS [None]
  - PRURITUS GENERALISED [None]
  - CARDIOVASCULAR DISORDER [None]
